FAERS Safety Report 10979542 (Version 1)
Quarter: 2015Q2

REPORT INFORMATION
  Report Type: Spontaneous
  Country: ES (occurrence: ES)
  Receive Date: 20150402
  Receipt Date: 20150402
  Transmission Date: 20150821
  Serious: Yes (Hospitalization)
  Sender: FDA-Public Use
  Company Number: ES-BAYER-2015-087329

PATIENT
  Age: 56 Year
  Sex: Female

DRUGS (6)
  1. ABCIXIMAB [Suspect]
     Active Substance: ABCIXIMAB
     Indication: ANTIPLATELET THERAPY
     Dosage: UNK
     Route: 041
  2. ABCIXIMAB [Suspect]
     Active Substance: ABCIXIMAB
     Indication: ANTIPLATELET THERAPY
     Dosage: UNK
     Route: 040
  3. ACETYLSALICYLIC ACID({=100 MG) [Suspect]
     Active Substance: ASPIRIN
     Indication: ANTIPLATELET THERAPY
     Dosage: UNK
  4. ACETYLSALICYLIC ACID({=100 MG) [Suspect]
     Active Substance: ASPIRIN
     Indication: ANTIPLATELET THERAPY
     Dosage: 100 MG, QD
  5. CLOPIDOGREL [Suspect]
     Active Substance: CLOPIDOGREL BISULFATE
     Indication: ANTIPLATELET THERAPY
     Dosage: 75 MG, QD
  6. CLOPIDOGREL [Suspect]
     Active Substance: CLOPIDOGREL BISULFATE
     Indication: ANTIPLATELET THERAPY
     Dosage: UNK

REACTIONS (7)
  - Cerebral haemorrhage [Recovered/Resolved]
  - Circulatory collapse [Recovered/Resolved]
  - Neurological decompensation [Recovered/Resolved]
  - Labelled drug-drug interaction medication error [None]
  - Agitation [Recovered/Resolved]
  - Electrocardiogram ST segment elevation [Recovered/Resolved]
  - Thrombosis in device [Recovered/Resolved]
